FAERS Safety Report 25414674 (Version 1)
Quarter: 2025Q2

REPORT INFORMATION
  Report Type: Spontaneous
  Country: JP (occurrence: JP)
  Receive Date: 20250609
  Receipt Date: 20250609
  Transmission Date: 20250717
  Serious: Yes (Hospitalization, Other)
  Sender: MERCK SHARP & DOHME LLC
  Company Number: JP-009507513-2292476

PATIENT
  Age: 62 Year
  Sex: Female
  Weight: 62.95 kg

DRUGS (15)
  1. KEYTRUDA [Suspect]
     Active Substance: PEMBROLIZUMAB
     Indication: Uterine cancer
     Dosage: DOSAGE: 200MG ONCE
     Route: 041
     Dates: start: 20250411
  2. PACLITAXEL [Suspect]
     Active Substance: PACLITAXEL
     Indication: Uterine cancer
     Dosage: DOSAGE: 303.1 MG?ONCE .
     Route: 041
     Dates: start: 20250411
  3. CARBOPLATIN [Suspect]
     Active Substance: CARBOPLATIN
     Indication: Uterine cancer
     Dosage: DOSAGE: 521.5 MG ?ONCE.
     Route: 041
     Dates: start: 20250411
  4. LYUMJEV [Concomitant]
     Active Substance: INSULIN LISPRO-AABC
  5. INSULIN GLARGINE [Concomitant]
     Active Substance: INSULIN GLARGINE
  6. OLMESARTAN [Concomitant]
     Active Substance: OLMESARTAN
  7. AMLODIPINE [Concomitant]
     Active Substance: AMLODIPINE BESYLATE
  8. ATORVASTATIN [Concomitant]
     Active Substance: ATORVASTATIN
  9. BIFIDOBACTERIUM SPP. [Concomitant]
     Active Substance: BIFIDOBACTERIUM SPP.
  10. SUPLATAST TOSILATE [Concomitant]
     Active Substance: SUPLATAST TOSILATE
  11. NEUROTROPIN [Concomitant]
     Active Substance: NEUROTROPIN
  12. RUPAFIN [Concomitant]
     Active Substance: RUPATADINE FUMARATE
  13. TRANEXAMIC ACID [Concomitant]
     Active Substance: TRANEXAMIC ACID
  14. MONTELUKAST [Concomitant]
     Active Substance: MONTELUKAST
  15. VIBRAMYCIN [Concomitant]
     Active Substance: DOXYCYCLINE

REACTIONS (3)
  - Stevens-Johnson syndrome [Recovering/Resolving]
  - Immune-mediated hepatic disorder [Recovered/Resolved]
  - Erythema multiforme [Unknown]

NARRATIVE: CASE EVENT DATE: 20250426
